FAERS Safety Report 16386953 (Version 1)
Quarter: 2019Q2

REPORT INFORMATION
  Report Type: Spontaneous
  Country: NL (occurrence: NL)
  Receive Date: 20190604
  Receipt Date: 20190604
  Transmission Date: 20190711
  Serious: Yes (Life-Threatening, Hospitalization, Disabling)
  Sender: FDA-Public Use
  Company Number: NL-ROCHE-2328828

PATIENT
  Age: 57 Year
  Sex: Male
  Weight: 52 kg

DRUGS (2)
  1. XELODA [Suspect]
     Active Substance: CAPECITABINE
     Indication: CHOLANGIOCARCINOMA
     Dosage: 2DD 1250 MG/M2
     Route: 048
     Dates: start: 20190311, end: 20190501
  2. CREON FORTE [Concomitant]
     Dosage: ORAAL 3-10DD 1 STUK
     Route: 048

REACTIONS (4)
  - Diarrhoea [Unknown]
  - Metabolic acidosis [Unknown]
  - Blood lactic acid increased [Unknown]
  - Shock [Unknown]

NARRATIVE: CASE EVENT DATE: 20190424
